FAERS Safety Report 24309447 (Version 2)
Quarter: 2024Q4

REPORT INFORMATION
  Report Type: Report from Study
  Country: PT (occurrence: PT)
  Receive Date: 20240911
  Receipt Date: 20241008
  Transmission Date: 20250114
  Serious: Yes (Other)
  Sender: ABBVIE
  Company Number: PT-ABBVIE-5915633

PATIENT
  Age: 57 Year
  Sex: Male

DRUGS (11)
  1. CARBIDOPA\LEVODOPA [Suspect]
     Active Substance: CARBIDOPA\LEVODOPA
     Indication: Parkinson^s disease
     Dosage: FORM STRENGTH: 20 MILLIGRAM + 5 MILLIGRAM, FREQUENCY TEXT: MORN:9.5CC;MAINT:4.8CC/H;EXT:1CC, STOP...
     Route: 050
     Dates: start: 20220303
  2. CARBIDOPA\LEVODOPA [Suspect]
     Active Substance: CARBIDOPA\LEVODOPA
     Dosage: FORM STRENGTH: 20 MILLIGRAM + 5 MILLIGRAM FREQUENCY TEXT: MAIN:7.1CC/H(DAY),7.3CC/H(NIGHT);EX5CC
     Route: 050
     Dates: start: 2024, end: 20240828
  3. CARBIDOPA\LEVODOPA [Suspect]
     Active Substance: CARBIDOPA\LEVODOPA
     Dosage: FORM STRENGTH: 20 MG + 5 MG (GASTRIC), FREQUENCY TEXT: MAIN:7.1CC/H(DAY),7.3CC/H(NIGHT);EX5CC
     Dates: start: 20240828
  4. MELATONIN [Concomitant]
     Active Substance: MELATONIN
     Indication: Product used for unknown indication
     Dosage: 2 TABLET, FORM STRENGTH: 2 MILLIGRAM, START DATE TEXT: BEFORE DUODOPA
  5. SILODOSIN [Concomitant]
     Active Substance: SILODOSIN
     Indication: Product used for unknown indication
     Dosage: FORM STRENGTH: 8 MILLIGRAM, START DATE TEXT: BEFORE DUODOPA
  6. RIVOTRIL [Concomitant]
     Active Substance: CLONAZEPAM
     Indication: Product used for unknown indication
     Dosage: FORM STRENGTH: 0.5 MILLIGRAM + 0 + 2 MILLIGRAM , START DATE TEXT: BEFORE DUODOPA
  7. AVODART [Concomitant]
     Active Substance: DUTASTERIDE
     Indication: Product used for unknown indication
     Dosage: FORM STRENGTH: 0.5 MILLIGRAM, START DATE TEXT: BEFORE DUODOPA
  8. LYRICA [Concomitant]
     Active Substance: PREGABALIN
     Indication: Product used for unknown indication
     Dosage: TIME INTERVAL: 0.33333333 DAYS: FORM STRENGTH: 100 MILLIGRAM, START DATE TEXT: BEFORE DUODOPA
  9. ESCITALOPRAM [Concomitant]
     Active Substance: ESCITALOPRAM OXALATE
     Indication: Product used for unknown indication
     Dosage: FORM STRENGTH: 20,FORM STRENGTH UNITS: MILLIGRAM, START DATE TEXT: BEFORE DUODOPA
  10. QUETIAPINE [Concomitant]
     Active Substance: QUETIAPINE
     Indication: Product used for unknown indication
     Dosage: 50 MG + 100MG + 150MG
  11. QUETIAPINE [Concomitant]
     Active Substance: QUETIAPINE
     Indication: Product used for unknown indication
     Dosage: 50 MG + 100MG + 150MG, START DATE TEXT: BEFORE DUODOPA

REACTIONS (1)
  - Urinary tract infection [Recovered/Resolved]

NARRATIVE: CASE EVENT DATE: 20240901
